FAERS Safety Report 10163038 (Version 1)
Quarter: 2014Q2

REPORT INFORMATION
  Report Type: Report from Study
  Country: BR (occurrence: BR)
  Receive Date: 20140509
  Receipt Date: 20140509
  Transmission Date: 20141212
  Serious: Yes (Hospitalization, Other)
  Sender: FDA-Public Use
  Company Number: PHHY2014BR054451

PATIENT
  Age: 52 Year
  Sex: Female
  Weight: 70.6 kg

DRUGS (3)
  1. GALVUS MET [Suspect]
     Indication: DIABETES MELLITUS
     Dosage: 1 DF, DAILY
     Dates: start: 201403, end: 20140401
  2. GALVUS MET [Suspect]
     Dosage: 1 DF, UNK
  3. LOSARTAN [Suspect]
     Indication: HYPERTENSION
     Dosage: UNK UKN, UNK

REACTIONS (8)
  - Colitis [Recovering/Resolving]
  - Blood pressure abnormal [Recovering/Resolving]
  - Malaise [Recovering/Resolving]
  - Abdominal pain upper [Recovering/Resolving]
  - Vomiting [Recovering/Resolving]
  - Diarrhoea [Recovering/Resolving]
  - Urticaria [Unknown]
  - Decreased appetite [Unknown]
